FAERS Safety Report 6202941-1 (Version None)
Quarter: 2009Q2

REPORT INFORMATION
  Report Type: 
  Country: None (occurrence: None)
  Receive Date: 20090526
  Receipt Date: 20090519
  Transmission Date: 20091009
  Serious: Yes (Other)
  Sender: FDA-Public Use
  Company Number: US-GENENTECH-273808

PATIENT
  Sex: Female

DRUGS (11)
  1. OMALIZUMAB [Suspect]
     Indication: ASTHMA
  2. ALLEGRA [Concomitant]
     Indication: HYPERSENSITIVITY
  3. SINGULAIR [Concomitant]
     Indication: HYPERSENSITIVITY
  4. OMEPRAZOLE [Concomitant]
     Indication: GASTROOESOPHAGEAL REFLUX DISEASE
  5. FLONASE [Concomitant]
     Indication: HYPERSENSITIVITY
  6. ADVAIR HFA [Concomitant]
     Indication: ASTHMA
  7. BIRTH CONTROL PILLS NOS [Concomitant]
     Indication: CONTRACEPTION
  8. PROZAC [Concomitant]
     Indication: DEPRESSION
  9. VITAMIN TAB [Concomitant]
     Indication: PREGNANCY
  10. ALBUTEROL [Concomitant]
     Indication: ASTHMA
  11. ZOLOFT [Concomitant]
     Indication: DEPRESSION

REACTIONS (2)
  - ASTHMA [None]
  - OESOPHAGEAL STENOSIS [None]
